FAERS Safety Report 23141896 (Version 1)
Quarter: 2023Q4

REPORT INFORMATION
  Report Type: Other
  Country: NL (occurrence: NL)
  Receive Date: 20231103
  Receipt Date: 20231103
  Transmission Date: 20240109
  Serious: Yes (Other)
  Sender: FDA-Public Use
  Company Number: NL-ROCHE-2873900

PATIENT
  Age: 13 Year
  Sex: Female

DRUGS (4)
  1. RITUXIMAB [Suspect]
     Active Substance: RITUXIMAB
     Indication: Systemic lupus erythematosus
     Dosage: ONE CYCLE CONSISTED OF 2 INFUSIONS WITH 7-14 DAYS INTERVAL
     Route: 042
  2. HYDROXYCHLOROQUINE [Concomitant]
     Active Substance: HYDROXYCHLOROQUINE
     Route: 065
  3. AZATHIOPRINE [Concomitant]
     Active Substance: AZATHIOPRINE
     Dosage: 5-10 MG
     Route: 048
  4. PREDNISOLONE [Concomitant]
     Active Substance: PREDNISOLONE
     Dosage: 0.3-0.5 MG/KG
     Route: 042

REACTIONS (4)
  - Anaphylactic reaction [Unknown]
  - Off label use [Unknown]
  - Off label use [Unknown]
  - Drug specific antibody present [Unknown]
